FAERS Safety Report 4693213-5 (Version None)
Quarter: 2005Q2

REPORT INFORMATION
  Report Type: 
  Country: None (occurrence: None)
  Receive Date: 20050615
  Receipt Date: 20050610
  Transmission Date: 20051028
  Serious: Yes (Hospitalization, Other)
  Sender: FDA-Public Use
  Company Number: SEWYE707931MAY05

PATIENT
  Age: 60 Year
  Sex: Female

DRUGS (6)
  1. CYCLOSPORINE [Suspect]
     Indication: RENAL TRANSPLANT
     Dosage: 125 MG 2X PER 1 DAY, ORAL
     Route: 048
     Dates: start: 20050120
  2. CELLCEPT [Concomitant]
  3. PREDNISOLONE [Concomitant]
  4. PANTOPRAZOLE SODIUM [Concomitant]
  5. TRIMETHOPRIM-SULFAMETHOXAZOLE [Concomitant]
  6. LESCOL [Concomitant]

REACTIONS (3)
  - BLOOD CREATININE INCREASED [None]
  - CYTOMEGALOVIRUS INFECTION [None]
  - KIDNEY TRANSPLANT REJECTION [None]
